FAERS Safety Report 18501084 (Version 2)
Quarter: 2021Q2

REPORT INFORMATION
  Report Type: Other
  Country: US (occurrence: US)
  Receive Date: 20201113
  Receipt Date: 20210618
  Transmission Date: 20210717
  Serious: Yes (Hospitalization, Disabling, Other)
  Sender: FDA-Public Use
  Company Number: US-ACORDA-ACO_166767_2020

PATIENT
  Age: 79 Year
  Sex: Female

DRUGS (1)
  1. INBRIJA [Suspect]
     Active Substance: LEVODOPA
     Indication: PARKINSON^S DISEASE
     Dosage: 84 MILLIGRAM, PRN
     Dates: start: 20191205

REACTIONS (8)
  - Cerebral haemorrhage [Recovered/Resolved]
  - Gait inability [Not Recovered/Not Resolved]
  - Cerebral thrombosis [Recovered/Resolved]
  - Balance disorder [Not Recovered/Not Resolved]
  - General physical condition abnormal [Not Recovered/Not Resolved]
  - Loss of personal independence in daily activities [Not Recovered/Not Resolved]
  - Cerebrovascular accident [Recovered/Resolved]
  - Muscle strength abnormal [Not Recovered/Not Resolved]

NARRATIVE: CASE EVENT DATE: 202010
